FAERS Safety Report 19666215 (Version 1)
Quarter: 2021Q3

REPORT INFORMATION
  Report Type: Spontaneous
  Country: US (occurrence: US)
  Receive Date: 20210806
  Receipt Date: 20210806
  Transmission Date: 20211014
  Serious: Yes (Hospitalization)
  Sender: FDA-Public Use
  Company Number: None

PATIENT
  Sex: Female
  Weight: 70.8 kg

DRUGS (3)
  1. LENALIDOMIDE (CC?5013) [Concomitant]
     Active Substance: LENALIDOMIDE
  2. DARATUMUMAB [Suspect]
     Active Substance: DARATUMUMAB
  3. DEXAMETHASONE. [Concomitant]
     Active Substance: DEXAMETHASONE

REACTIONS (5)
  - Head injury [None]
  - Fall [None]
  - Wrist fracture [None]
  - Pain [None]
  - Femur fracture [None]

NARRATIVE: CASE EVENT DATE: 20210720
